FAERS Safety Report 13062326 (Version 1)
Quarter: 2016Q4

REPORT INFORMATION
  Report Type: Spontaneous
  Country: DE (occurrence: DE)
  Receive Date: 20161226
  Receipt Date: 20161226
  Transmission Date: 20170207
  Serious: Yes (Other)
  Sender: FDA-Public Use
  Company Number: DE-AMGEN-DEUSP2016181756

PATIENT
  Age: 12 Year
  Sex: Female

DRUGS (2)
  1. BLINCYTO [Suspect]
     Active Substance: BLINATUMOMAB
     Indication: ACUTE LYMPHOCYTIC LEUKAEMIA REFRACTORY
     Dosage: 15 MUG/M2, QD
     Route: 065
  2. PEMBROLIZUMAB. [Concomitant]
     Active Substance: PEMBROLIZUMAB
     Indication: ACUTE LYMPHOCYTIC LEUKAEMIA REFRACTORY
     Dosage: 1 MG/KG, UNK

REACTIONS (9)
  - Fibrin D dimer increased [Unknown]
  - Procalcitonin increased [Unknown]
  - Pyrexia [Unknown]
  - Drug ineffective [Unknown]
  - Acute lymphocytic leukaemia recurrent [Unknown]
  - Interleukin level increased [Unknown]
  - Serum ferritin increased [Unknown]
  - Interleukin-2 receptor increased [Unknown]
  - C-reactive protein increased [Unknown]
